FAERS Safety Report 19005219 (Version 3)
Quarter: 2021Q1

REPORT INFORMATION
  Report Type: Report from Study
  Country: US (occurrence: US)
  Receive Date: 20210313
  Receipt Date: 20210331
  Transmission Date: 20210420
  Serious: No
  Sender: FDA-Public Use
  Company Number: NVSC2021US053007

PATIENT
  Age: 63 Year
  Sex: Male

DRUGS (2)
  1. MAYZENT [Suspect]
     Active Substance: SIPONIMOD
     Indication: PRODUCT USED FOR UNKNOWN INDICATION
     Dosage: 0.25 MG
     Route: 048
     Dates: start: 20210304
  2. MAYZENT [Suspect]
     Active Substance: SIPONIMOD
     Dosage: 2 MG, QD
     Route: 048

REACTIONS (10)
  - Fatigue [Unknown]
  - Slow speech [Recovered/Resolved]
  - Depression [Unknown]
  - Dizziness [Recovered/Resolved]
  - Memory impairment [Unknown]
  - Head discomfort [Recovered/Resolved]
  - Limb discomfort [Unknown]
  - Bradyphrenia [Recovered/Resolved]
  - Balance disorder [Unknown]
  - Ill-defined disorder [Unknown]

NARRATIVE: CASE EVENT DATE: 20210304
